FAERS Safety Report 18575127 (Version 1)
Quarter: 2020Q4

REPORT INFORMATION
  Report Type: Spontaneous
  Country: JP (occurrence: JP)
  Receive Date: 20201203
  Receipt Date: 20201203
  Transmission Date: 20210114
  Serious: Yes (Other)
  Sender: FDA-Public Use
  Company Number: JP-PFIZER INC-2020472235

PATIENT
  Age: 55 Year
  Sex: Male

DRUGS (5)
  1. TANATRIL [Suspect]
     Active Substance: IMIDAPRIL
     Dosage: UNK
  2. SELARA [Suspect]
     Active Substance: EPLERENONE
     Indication: HYPERTENSION
     Dosage: 100 MG, DAILY
     Route: 048
  3. AMLODIPINE BESILATE [Suspect]
     Active Substance: AMLODIPINE BESYLATE
     Dosage: UNK
  4. GABAPEN [Concomitant]
     Active Substance: GABAPENTIN
     Dosage: UNK
  5. LYRICA [Concomitant]
     Active Substance: PREGABALIN
     Dosage: UNK

REACTIONS (1)
  - Hypokalaemia [Unknown]
